FAERS Safety Report 15360092 (Version 2)
Quarter: 2018Q3

REPORT INFORMATION
  Report Type: Report from Study
  Country: None (occurrence: TR)
  Receive Date: 20180907
  Receipt Date: 20180913
  Transmission Date: 20181010
  Serious: Yes (Hospitalization)
  Sender: FDA-Public Use
  Company Number: TR-ABBVIE-18S-161-2476372-00

PATIENT
  Age: 61 Year
  Sex: Male

DRUGS (2)
  1. DUODOPA [Suspect]
     Active Substance: CARBIDOPA\LEVODOPA
     Indication: PARKINSON^S DISEASE
     Dosage: MORNING DOSE: 7.50 ML??CONTINUING DOSE: 5.30 ML??EXTRA DOSE: 1.00 ML
     Route: 050
     Dates: start: 20161102
  2. ENTERAL NUTRITION SOLUTION [Concomitant]
     Indication: DYSPHAGIA
     Route: 050

REACTIONS (2)
  - Haematuria [Recovered/Resolved]
  - Bladder mass [Recovered/Resolved]

NARRATIVE: CASE EVENT DATE: 20180901
